FAERS Safety Report 11908385 (Version 3)
Quarter: 2016Q2

REPORT INFORMATION
  Report Type: Spontaneous
  Country: US (occurrence: US)
  Receive Date: 20160111
  Receipt Date: 20160404
  Transmission Date: 20160815
  Serious: Yes (Hospitalization)
  Sender: FDA-Public Use
  Company Number: US-PFIZER INC-2016005068

PATIENT
  Age: 64 Year
  Sex: Male
  Weight: 77 kg

DRUGS (16)
  1. REVATIO [Suspect]
     Active Substance: SILDENAFIL CITRATE
     Indication: CARDIAC DISORDER
     Dosage: 60 MG, 3X/DAY
     Dates: start: 201503
  2. FUROSEMIDE. [Concomitant]
     Active Substance: FUROSEMIDE
     Dosage: 40 MG, 1X/DAY
     Dates: start: 2015
  3. WARFARIN [Suspect]
     Active Substance: WARFARIN
     Dosage: 5 MG, 1X/DAY
  4. JANUVIA [Concomitant]
     Active Substance: SITAGLIPTIN PHOSPHATE
     Indication: DIABETES MELLITUS
     Dosage: 100 MG, DAILY
  5. REVATIO [Suspect]
     Active Substance: SILDENAFIL CITRATE
     Indication: LUNG DISORDER
     Dosage: 20 MG, 3X/DAY
     Dates: start: 20150401
  6. METFORMIN [Concomitant]
     Active Substance: METFORMIN HYDROCHLORIDE
     Indication: DIABETES MELLITUS
     Dosage: 2000 MG, DAILY
  7. ATORVASTATIN [Concomitant]
     Active Substance: ATORVASTATIN
     Dosage: 80 MG, DAILY
  8. ASPIRIN. [Concomitant]
     Active Substance: ASPIRIN
     Indication: CARDIAC DISORDER
     Dosage: 81 MG, 1X/DAY
  9. IRON [Concomitant]
     Active Substance: IRON
     Indication: IRON DEFICIENCY
     Dosage: 325 MG/5 GR, 2X/DAY
     Dates: start: 2015
  10. WARFARIN [Suspect]
     Active Substance: WARFARIN
     Indication: THROMBOSIS
     Dosage: 5 MG, CYCLIC, 1 TABLET MON-THU AND SAT, 1/2 TABLET ON FRI AND SUN
     Dates: start: 201403, end: 20151127
  11. POTASSIUM [Concomitant]
     Active Substance: POTASSIUM
     Indication: HYPOKALAEMIA
     Dosage: 20 MEQ, DAILY
     Dates: start: 2015
  12. ACARBOSE. [Concomitant]
     Active Substance: ACARBOSE
     Dosage: 25 MG, 3X/DAY
  13. DIGOXIN. [Concomitant]
     Active Substance: DIGOXIN
     Indication: DIURETIC THERAPY
     Dosage: 0.125 MG, 1X/DAY
     Dates: start: 2015
  14. TYVASO [Concomitant]
     Active Substance: TREPROSTINIL
     Indication: RESPIRATORY DISORDER
     Dosage: 1.74 MG, 9 BREATHS A SESSION, 4 SESSIONS A DAY
     Dates: start: 201505
  15. LEVOTHYROXINE. [Concomitant]
     Active Substance: LEVOTHYROXINE
     Indication: THYROID DISORDER
     Dosage: 75 UG, 1X/DAY
  16. TYVASO [Concomitant]
     Active Substance: TREPROSTINIL
     Indication: LUNG DISORDER

REACTIONS (2)
  - Product use issue [Recovered/Resolved]
  - Thrombosis [Recovered/Resolved]

NARRATIVE: CASE EVENT DATE: 201503
